FAERS Safety Report 17222895 (Version 1)
Quarter: 2020Q1

REPORT INFORMATION
  Report Type: Spontaneous
  Country: CA (occurrence: CA)
  Receive Date: 20200102
  Receipt Date: 20200102
  Transmission Date: 20200409
  Serious: Yes (Other)
  Sender: FDA-Public Use
  Company Number: CA-SA-2019SA355216

PATIENT
  Age: 66 Year
  Sex: Female

DRUGS (12)
  1. SITAGLIPTIN [Suspect]
     Active Substance: SITAGLIPTIN
     Dosage: UNK UNK, UNK
     Route: 065
  2. ELIQUIS [Suspect]
     Active Substance: APIXABAN
     Dosage: UNK UNK, UNK
     Route: 065
  3. HYDROCHLOROTHIAZIDE. [Concomitant]
     Active Substance: HYDROCHLOROTHIAZIDE
     Dosage: UNK UNK, UNK
  4. METFORMIN [Concomitant]
     Active Substance: METFORMIN HYDROCHLORIDE
     Dosage: UNK UNK, UNK
  5. CANTHARONE [Suspect]
     Active Substance: CANTHARIDIN
     Indication: ANOGENITAL WARTS
     Dosage: UNK UNK, UNK
     Route: 061
  6. VITAMIN D [VITAMIN D NOS] [Concomitant]
     Active Substance: VITAMIN D NOS
     Dosage: UNK UNK, UNK
  7. RANITIDINE. [Suspect]
     Active Substance: RANITIDINE
     Dosage: UNK UNK, UNK
  8. GABAPENTIN. [Concomitant]
     Active Substance: GABAPENTIN
     Dosage: UNK UNK, UNK
  9. CALCIUM [Concomitant]
     Active Substance: CALCIUM
     Dosage: UNK UNK, UNK
     Route: 065
  10. IRBESARTAN. [Concomitant]
     Active Substance: IRBESARTAN
     Dosage: UNK UNK, UNK
  11. INSULIN ASPART [Concomitant]
     Active Substance: INSULIN ASPART
     Dosage: UNK UNK, UNK
  12. LEVOTHYROXINE. [Concomitant]
     Active Substance: LEVOTHYROXINE
     Dosage: UNK UNK, UNK

REACTIONS (6)
  - Application site vesicles [Recovering/Resolving]
  - Product communication issue [Unknown]
  - Anogenital warts [Recovering/Resolving]
  - Skin plaque [Recovering/Resolving]
  - Vulvovaginal pain [Recovering/Resolving]
  - Off label use [Unknown]
